FAERS Safety Report 20938841 (Version 1)
Quarter: 2022Q2

REPORT INFORMATION
  Report Type: Spontaneous
  Country: DE (occurrence: DE)
  Receive Date: 20220609
  Receipt Date: 20220609
  Transmission Date: 20220721
  Serious: Yes (Hospitalization)
  Sender: FDA-Public Use
  Company Number: DE-IBSA PHARMA INC.-2022IBS000174

PATIENT
  Age: 53 Year
  Sex: Female

DRUGS (2)
  1. LEVOTHYROXINE SODIUM [Suspect]
     Active Substance: LEVOTHYROXINE SODIUM
     Indication: Autoimmune thyroiditis
     Dosage: 88 MICROGRAM, QD
  2. PEMBROLIZUMAB [Suspect]
     Active Substance: PEMBROLIZUMAB
     Indication: Nodular melanoma
     Dosage: 400 MG EVERY 6 WEEKS
     Dates: start: 202203

REACTIONS (3)
  - Autoimmune thyroiditis [Unknown]
  - Condition aggravated [Unknown]
  - Drug ineffective [Unknown]
